FAERS Safety Report 14742424 (Version 1)
Quarter: 2018Q2

REPORT INFORMATION
  Report Type: Spontaneous
  Country: GB (occurrence: GB)
  Receive Date: 20180410
  Receipt Date: 20180410
  Transmission Date: 20180711
  Serious: Yes (Hospitalization)
  Sender: FDA-Public Use
  Company Number: GB-BAYER-RCH-335510

PATIENT
  Age: 86 Year
  Sex: Male

DRUGS (3)
  1. CO-PROXAMOL [Concomitant]
     Active Substance: ACETAMINOPHEN\PROPOXYPHENE HYDROCHLORIDE
     Route: 048
  2. ACETYLSALICYLIC ACID({=100 MG) [Suspect]
     Active Substance: ASPIRIN
     Indication: PRODUCT USED FOR UNKNOWN INDICATION
     Dosage: 75 MG (DAILY DOSE), , ORAL
     Route: 048
     Dates: end: 20030321
  3. QUININE BISULFATE [Concomitant]
     Active Substance: QUININE BISULFATE
     Indication: MUSCLE SPASMS
     Dosage: 200 MG (DAILY DOSE), , ORAL
     Route: 048

REACTIONS (2)
  - Gastrointestinal haemorrhage [Recovered/Resolved]
  - Ill-defined disorder [Recovered/Resolved]

NARRATIVE: CASE EVENT DATE: 20030320
